FAERS Safety Report 4680957-4 (Version None)
Quarter: 2005Q2

REPORT INFORMATION
  Report Type: 
  Country: None (occurrence: None)
  Receive Date: 20050601
  Receipt Date: 20050509
  Transmission Date: 20051028
  Serious: Yes (Hospitalization)
  Sender: FDA-Public Use
  Company Number: 6015021

PATIENT
  Age: 47 Year
  Sex: Male

DRUGS (5)
  1. AMIODARONE HCL [Suspect]
     Dates: start: 20050303, end: 20050309
  2. TEDISAMIL (TEDISAMIL) [Concomitant]
  3. TRIMETAZIDIMUM [Concomitant]
  4. ASPARCAM (KALIUM ASPARTATE, MAGNESIUM ASPARTATE) [Concomitant]
  5. VARFARIN [Concomitant]

REACTIONS (9)
  - ASTHMA [None]
  - ATRIAL FIBRILLATION [None]
  - ATRIAL FLUTTER [None]
  - BLOOD BILIRUBIN INCREASED [None]
  - BLOOD CHOLESTEROL INCREASED [None]
  - FEELING ABNORMAL [None]
  - HEART RATE INCREASED [None]
  - LABORATORY TEST ABNORMAL [None]
  - PALPITATIONS [None]
